FAERS Safety Report 7858526-4 (Version None)
Quarter: 2011Q4

REPORT INFORMATION
  Report Type: 
  Country: None (occurrence: None)
  Receive Date: 20111027
  Receipt Date: 20111018
  Transmission Date: 20120403
  Serious: Yes (Hospitalization, Other)
  Sender: FDA-Public Use
  Company Number: AU-JNJFOC-20110509241

PATIENT
  Age: 4 Decade
  Sex: Male

DRUGS (7)
  1. INVEGA SUSTENNA [Suspect]
     Route: 030
  2. INVEGA SUSTENNA [Suspect]
     Indication: SCHIZOPHRENIA
     Route: 030
     Dates: start: 20101217
  3. INVEGA SUSTENNA [Suspect]
     Route: 030
  4. INVEGA SUSTENNA [Suspect]
     Route: 030
     Dates: start: 20110520
  5. INVEGA SUSTENNA [Suspect]
     Route: 030
     Dates: start: 20110215
  6. INVEGA SUSTENNA [Suspect]
     Dosage: 150MG + 100 MG
     Route: 030
     Dates: start: 20101101
  7. INVEGA SUSTENNA [Suspect]
     Dosage: 2/ 150 MG INJECTIONS 1 MONTH APART
     Route: 030

REACTIONS (3)
  - CONFUSIONAL STATE [None]
  - PRODUCT QUALITY ISSUE [None]
  - SCHIZOPHRENIA [None]
